FAERS Safety Report 9513441 (Version 1)
Quarter: 2013Q3

REPORT INFORMATION
  Report Type: Spontaneous
  Country: US (occurrence: US)
  Receive Date: 20130910
  Receipt Date: 20130910
  Transmission Date: 20140515
  Serious: No
  Sender: FDA-Public Use
  Company Number: US-TARO-2012P1068210

PATIENT
  Age: 71 Year
  Sex: Female
  Weight: 49.44 kg

DRUGS (14)
  1. WARFARIN SODIUM TABLETS USP 7.5MG [Suspect]
     Indication: ATRIAL FIBRILLATION
     Dates: start: 2010
  2. WARFARIN SODIUM TABLETS USP 7.5MG [Suspect]
     Indication: ATRIAL FIBRILLATION
     Route: 048
     Dates: start: 201210, end: 20121121
  3. WARFARIN SODIUM TABLETS USP 7.5MG [Suspect]
     Indication: ATRIAL FIBRILLATION
     Route: 048
     Dates: start: 201210, end: 20121121
  4. WARFARIN SODIUM TABLETS USP 7.5MG [Suspect]
     Indication: ATRIAL FIBRILLATION
     Route: 048
     Dates: start: 20121128, end: 20121204
  5. WARFARIN SODIUM TABLETS USP 7.5MG [Suspect]
     Indication: ATRIAL FIBRILLATION
     Route: 048
     Dates: start: 20121205, end: 20121211
  6. WARFARIN SODIUM TABLETS USP 7.5MG [Suspect]
     Indication: ATRIAL FIBRILLATION
     Route: 048
     Dates: start: 20121205, end: 20121211
  7. WARFARIN SODIUM TABLETS USP 7.5MG [Suspect]
     Indication: ATRIAL FIBRILLATION
     Route: 048
     Dates: start: 20121212, end: 20121217
  8. WARFARIN SODIUM TABLETS USP 7.5MG [Suspect]
     Indication: ATRIAL FIBRILLATION
     Route: 048
     Dates: start: 20121212, end: 20121217
  9. WARFARIN SODIUM TABLETS USP 7.5MG [Suspect]
     Indication: ATRIAL FIBRILLATION
     Route: 048
     Dates: start: 20121218
  10. WARFARIN SODIUM TABLETS USP 7.5MG [Suspect]
     Indication: ATRIAL FIBRILLATION
     Route: 048
     Dates: start: 20121218
  11. MIRALAX [Concomitant]
     Dates: start: 201212
  12. METOPROLOL ER [Concomitant]
     Dates: start: 2010
  13. CITRACAL [Concomitant]
  14. CVS MULTIVITAMIN [Concomitant]

REACTIONS (1)
  - International normalised ratio decreased [Not Recovered/Not Resolved]
